FAERS Safety Report 4695954-2 (Version None)
Quarter: 2005Q2

REPORT INFORMATION
  Report Type: 
  Country: None (occurrence: None)
  Receive Date: 20050621
  Receipt Date: 20041130
  Transmission Date: 20051028
  Serious: Yes (Life-Threatening)
  Sender: FDA-Public Use
  Company Number: PHBS2004JP16094

PATIENT
  Age: 24 Year
  Sex: Female

DRUGS (5)
  1. TEGRETOL [Suspect]
     Indication: EPILEPSY
     Dosage: 3600 MG, ONCE/SINGLE
     Route: 048
     Dates: start: 20041129, end: 20041129
  2. DEPROMEL [Suspect]
     Dosage: 9000 MG, ONCE/SINGLE
     Route: 048
     Dates: start: 20041129, end: 20041129
  3. HIRNAMIN [Suspect]
     Dosage: 150 MG, ONCE/SINGLE
     Route: 048
     Dates: start: 20041129, end: 20041129
  4. CERCINE [Suspect]
     Dosage: 140 MG, ONCE/SINGLE
     Route: 048
     Dates: start: 20041129, end: 20041129
  5. BENZALIN [Suspect]
     Dosage: 300 MG, ONCE/SINGLE
     Route: 048
     Dates: start: 20041129, end: 20041129

REACTIONS (4)
  - DEPRESSED LEVEL OF CONSCIOUSNESS [None]
  - INTUBATION [None]
  - LARYNGEAL OEDEMA [None]
  - SUICIDE ATTEMPT [None]
